FAERS Safety Report 11538647 (Version 1)
Quarter: 2015Q3

REPORT INFORMATION
  Report Type: Spontaneous
  Country: US (occurrence: None)
  Receive Date: 20150921
  Receipt Date: 20150921
  Transmission Date: 20151125
  Serious: Yes (Disabling)
  Sender: FDA-Public Use
  Company Number: None

PATIENT
  Age: 70 Year
  Sex: Female
  Weight: 68.04 kg

DRUGS (13)
  1. HYDRO EYE [Concomitant]
  2. MIRALAX [Concomitant]
     Active Substance: POLYETHYLENE GLYCOL 3350
  3. D3 [Concomitant]
     Active Substance: 25-HYDROXYCHOLECALCIFEROL, 5-TRANS-
  4. OMEPRAZOLE. [Concomitant]
     Active Substance: OMEPRAZOLE
  5. COMPLETE VITAMINS [Concomitant]
  6. BIOTIN [Concomitant]
     Active Substance: BIOTIN
  7. L THYROXINE [Concomitant]
     Active Substance: LEVOTHYROXINE SODIUM
  8. ROPINEROLE [Concomitant]
     Active Substance: ROPINIROLE
  9. TRAMADOL HYDROCHLORIDE. [Suspect]
     Active Substance: TRAMADOL HYDROCHLORIDE
     Indication: ARTHRITIS
     Dosage: 1 TO 2 TABLETS
     Route: 048
     Dates: start: 20150901, end: 20150916
  10. CALCIUM CITRATE [Concomitant]
     Active Substance: CALCIUM CITRATE
  11. STOOL SOFTENER [Concomitant]
     Active Substance: DOCUSATE CALCIUM
  12. AREDS 2 [Concomitant]
  13. FERROUS SEQUELS [Concomitant]

REACTIONS (2)
  - Skin exfoliation [None]
  - Pruritus generalised [None]

NARRATIVE: CASE EVENT DATE: 20150916
